FAERS Safety Report 19423809 (Version 1)
Quarter: 2021Q2

REPORT INFORMATION
  Report Type: Spontaneous
  Country: FR (occurrence: FR)
  Receive Date: 20210616
  Receipt Date: 20210616
  Transmission Date: 20210717
  Serious: Yes (Hospitalization)
  Sender: FDA-Public Use
  Company Number: NVSC2021FR103912

PATIENT
  Age: 50 Year
  Sex: Male

DRUGS (2)
  1. ZOLPIDEM [Suspect]
     Active Substance: ZOLPIDEM TARTRATE
     Indication: PRODUCT USED FOR UNKNOWN INDICATION
     Dosage: VARIABLE : 6 ? 7 CP PAR JOURJUSQU^? 2 BOITES PAR JOUR
     Route: 048
     Dates: start: 2013, end: 20210424
  2. ZOLPIDEM [Suspect]
     Active Substance: ZOLPIDEM TARTRATE
     Dosage: JUSQU^? 2 BOITES PAR JOUR, START DATE: 2021
     Route: 048

REACTIONS (2)
  - Drug dependence [Recovering/Resolving]
  - Substance abuse [Recovering/Resolving]
